FAERS Safety Report 7468444-1 (Version None)
Quarter: 2011Q2

REPORT INFORMATION
  Report Type: 
  Country: None (occurrence: None)
  Receive Date: 20110509
  Receipt Date: 20110502
  Transmission Date: 20111010
  Serious: Yes (Hospitalization)
  Sender: FDA-Public Use
  Company Number: DE-GENENTECH-318127

PATIENT
  Age: 71 Year
  Sex: Female

DRUGS (4)
  1. ALENDRONIC ACID [Concomitant]
     Indication: PRODUCT USED FOR UNKNOWN INDICATION
     Dosage: 70 MG, UNK
     Dates: start: 20051201, end: 20100601
  2. METHOTREXATE [Suspect]
     Indication: RHEUMATOID ARTHRITIS
     Dosage: 15 MG, UNK
     Route: 051
     Dates: start: 20040501
  3. METOPROLOL TARTRATE [Concomitant]
     Dosage: 50 MG, BID
  4. RITUXAN [Suspect]
     Indication: RHEUMATOID ARTHRITIS
     Dosage: 2000 MG, UNK
     Route: 065
     Dates: start: 20100212

REACTIONS (2)
  - POST HERPETIC NEURALGIA [None]
  - HERPES ZOSTER [None]
